FAERS Safety Report 7744803-4 (Version None)
Quarter: 2011Q3

REPORT INFORMATION
  Report Type: 
  Country: None (occurrence: None)
  Receive Date: 20110912
  Receipt Date: 20110912
  Transmission Date: 20111222
  Serious: No
  Sender: FDA-Public Use
  Company Number: None

PATIENT
  Age: 67 Year
  Sex: Female
  Weight: 62.595 kg

DRUGS (1)
  1. DYSPORT [Suspect]
     Indication: SKIN COSMETIC PROCEDURE
     Dosage: 15 UNITS
     Route: 023
     Dates: start: 20110802, end: 20110802

REACTIONS (3)
  - EYELID PTOSIS [None]
  - DIPLOPIA [None]
  - VITH NERVE PARALYSIS [None]
